FAERS Safety Report 10471539 (Version 1)
Quarter: 2014Q3

REPORT INFORMATION
  Report Type: Spontaneous
  Country: US (occurrence: US)
  Receive Date: 20140923
  Receipt Date: 20140923
  Transmission Date: 20150326
  Serious: No
  Sender: FDA-Public Use
  Company Number: US-009507513-1409USA009719

PATIENT
  Age: 50 Year
  Sex: Male

DRUGS (1)
  1. PROPECIA [Suspect]
     Active Substance: FINASTERIDE
     Indication: ALOPECIA
     Dosage: 1 MG, QD
     Route: 048
     Dates: start: 2004, end: 20140818

REACTIONS (4)
  - Ejaculation failure [Unknown]
  - Alopecia [Unknown]
  - Infertility male [Unknown]
  - Sperm concentration decreased [Unknown]

NARRATIVE: CASE EVENT DATE: 2004
